FAERS Safety Report 8428605-1 (Version None)
Quarter: 2012Q2

REPORT INFORMATION
  Report Type: 
  Country: None (occurrence: None)
  Receive Date: 20120606
  Receipt Date: 20120521
  Transmission Date: 20120825
  Serious: Yes (Other)
  Sender: FDA-Public Use
  Company Number: 2012MA006412

PATIENT
  Age: 67 Year
  Sex: Male
  Weight: 97.5234 kg

DRUGS (6)
  1. PLAVIX [Concomitant]
  2. LISINOPRIL [Concomitant]
  3. CRESTOR [Concomitant]
  4. MINOXIDIL [Suspect]
     Indication: ALOPECIA
     Dosage: 5 PCT;BID;TOP
     Route: 061
     Dates: start: 20120507, end: 20120510
  5. ASPIRIN [Concomitant]
  6. COREG [Concomitant]

REACTIONS (1)
  - DRUG HYPERSENSITIVITY [None]
